FAERS Safety Report 23666734 (Version 2)
Quarter: 2024Q2

REPORT INFORMATION
  Report Type: Spontaneous
  Country: CA (occurrence: CA)
  Receive Date: 20240325
  Receipt Date: 20240508
  Transmission Date: 20240716
  Serious: Yes (Hospitalization)
  Sender: FDA-Public Use
  Company Number: CA-BAXTER-2024BAX015151

PATIENT
  Age: 48 Year
  Sex: Male

DRUGS (2)
  1. DEXTROSE [Suspect]
     Active Substance: DEXTROSE\DEXTROSE MONOHYDRATE
     Dosage: AT AN UNSPECIFIED DOSE AND FREQUENCY, AT 2 ML (MILLILITRE) PER HOUR
     Route: 065
     Dates: start: 20240314, end: 20240314
  2. FLUOROURACIL [Suspect]
     Active Substance: FLUOROURACIL
     Dosage: AT AN UNSPECIFIED DOSE AND FREQUENCY, AT 2 ML (MILLILITRE) PER HOUR
     Route: 065
     Dates: start: 20240314, end: 20240314

REACTIONS (3)
  - Toxicity to various agents [Unknown]
  - Injury [Unknown]
  - Incorrect product administration duration [Unknown]

NARRATIVE: CASE EVENT DATE: 20240314
